FAERS Safety Report 6940283-7 (Version None)
Quarter: 2010Q3

REPORT INFORMATION
  Report Type: 
  Country: None (occurrence: None)
  Receive Date: 20100825
  Receipt Date: 20100813
  Transmission Date: 20110219
  Serious: Yes (Other)
  Sender: FDA-Public Use
  Company Number: PHFR2010GB01002

PATIENT
  Sex: Male

DRUGS (5)
  1. CLOZARIL [Suspect]
     Indication: SCHIZOPHRENIA
     Dosage: 250 MG/DAY
     Route: 048
     Dates: start: 19991012
  2. AMISULPRIDE [Concomitant]
     Dosage: 800 MG/DAY
     Route: 048
  3. LAMOTRIGINE [Concomitant]
     Dosage: 200 MG/DAY
     Route: 048
  4. CALOGEN                                 /IRE/ [Concomitant]
     Dosage: 90 ML/DAY
     Route: 048
  5. HYOSCINE HBR HYT [Concomitant]
     Dosage: 900 UG/DAY
     Route: 048

REACTIONS (5)
  - BLOOD CREATININE INCREASED [None]
  - DELUSIONAL PERCEPTION [None]
  - ELECTROCARDIOGRAM QT INTERVAL ABNORMAL [None]
  - GLOMERULAR FILTRATION RATE DECREASED [None]
  - SALIVARY HYPERSECRETION [None]
